FAERS Safety Report 5401510-0 (Version None)
Quarter: 2007Q3

REPORT INFORMATION
  Report Type: 
  Country: None (occurrence: None)
  Receive Date: 20070731
  Receipt Date: 20070720
  Transmission Date: 20080115
  Serious: Yes (Hospitalization)
  Sender: FDA-Public Use
  Company Number: FR-ROCHE-502079

PATIENT
  Age: 66 Year
  Sex: Male

DRUGS (1)
  1. CAPECITABINE [Suspect]
     Dosage: FREQUENCY NOT REPORTED.  LAST DOSE PRIOR TO EVENTS REPORTED TO BE 16 MARCH 2007
     Route: 048
     Dates: start: 20070312

REACTIONS (2)
  - LUNG DISORDER [None]
  - SMALL INTESTINAL OBSTRUCTION [None]
